FAERS Safety Report 4265991-0 (Version None)
Quarter: 2004Q1

REPORT INFORMATION
  Report Type: 
  Country: None (occurrence: None)
  Receive Date: 20040106
  Receipt Date: 20031222
  Transmission Date: 20041129
  Serious: Yes (Disabling)
  Sender: FDA-Public Use
  Company Number: 2003-06358

PATIENT
  Age: 12 Year
  Sex: Male
  Weight: 48 kg

DRUGS (5)
  1. VIREAD [Suspect]
     Indication: HIV INFECTION
     Dosage: 300 MG QD PO
     Route: 048
     Dates: start: 20030401
  2. EPIVIR [Suspect]
     Indication: HIV INFECTION
     Dosage: 300 MG QD PO
     Route: 048
     Dates: start: 19990101
  3. SUSTIVA [Suspect]
     Indication: HIV INFECTION
     Dosage: 600 MG QD PO
     Route: 048
     Dates: start: 20030401
  4. CRIXIVAN [Suspect]
     Indication: HIV INFECTION
     Dosage: 800 MG QD PO
     Route: 048
     Dates: start: 19990101, end: 20030401
  5. ZERIT [Suspect]
     Indication: HIV INFECTION
     Dosage: 30 MG PO PO
     Route: 048
     Dates: start: 19990101, end: 20030401

REACTIONS (5)
  - BLINDNESS [None]
  - CHOROIDITIS [None]
  - MACULAR DEGENERATION [None]
  - RETINAL DISORDER [None]
  - VISUAL ACUITY REDUCED [None]
